FAERS Safety Report 4434754-5 (Version None)
Quarter: 2004Q3

REPORT INFORMATION
  Report Type: 
  Country: None (occurrence: None)
  Receive Date: 20040827
  Receipt Date: 20040719
  Transmission Date: 20050211
  Serious: Yes (Other)
  Sender: FDA-Public Use
  Company Number: US-BRISTOL-MYERS SQUIBB COMPANY-12645636

PATIENT
  Age: 76 Year
  Sex: Male
  Weight: 113 kg

DRUGS (1)
  1. DEFINITY [Suspect]
     Indication: SYNCOPE
     Route: 040
     Dates: start: 20040719, end: 20040719

REACTIONS (1)
  - BACK PAIN [None]
